FAERS Safety Report 9675954 (Version 3)
Quarter: 2013Q4

REPORT INFORMATION
  Report Type: Spontaneous
  Country: JP (occurrence: JP)
  Receive Date: 20131107
  Receipt Date: 20131209
  Transmission Date: 20140711
  Serious: Yes (Death, Hospitalization)
  Sender: FDA-Public Use
  Company Number: JP-B.I. PHARMACEUTICALS,INC./RIDGEFIELD-2013-BI-35418NB

PATIENT
  Age: 87 Year
  Sex: Male

DRUGS (3)
  1. TRAZENTA [Suspect]
     Dosage: 5 MG
     Route: 048
  2. VOGLIBOSE [Suspect]
     Dosage: 0.6 MG
     Route: 048
  3. BUFFERIN [Suspect]
     Dosage: 81 MG
     Route: 048

REACTIONS (4)
  - Cardiac failure [Fatal]
  - Pleural effusion [Fatal]
  - Pericardial effusion [Fatal]
  - Oedema [Unknown]
